FAERS Safety Report 21662585 (Version 2)
Quarter: 2022Q4

REPORT INFORMATION
  Report Type: Report from Study
  Country: US (occurrence: US)
  Receive Date: 20221130
  Receipt Date: 20221202
  Transmission Date: 20230113
  Serious: No
  Sender: FDA-Public Use
  Company Number: US-ABBVIE-4217840

PATIENT
  Age: 77 Year
  Sex: Female

DRUGS (1)
  1. IMBRUVICA [Suspect]
     Active Substance: IBRUTINIB
     Indication: Chronic lymphocytic leukaemia
     Route: 048
     Dates: start: 20210817

REACTIONS (4)
  - Arthritis [Unknown]
  - Stomatitis [Unknown]
  - Pain [Unknown]
  - Cheilitis [Unknown]

NARRATIVE: CASE EVENT DATE: 20221101
